FAERS Safety Report 23342282 (Version 1)
Quarter: 2023Q4

REPORT INFORMATION
  Report Type: Report from Study
  Country: US (occurrence: US)
  Receive Date: 20231227
  Receipt Date: 20231227
  Transmission Date: 20240109
  Serious: Yes (Hospitalization, Other)
  Sender: FDA-Public Use
  Company Number: US-GILEAD-2023-0655863

PATIENT
  Age: 32 Year
  Sex: Female

DRUGS (5)
  1. AZTREONAM LYSINE [Suspect]
     Active Substance: AZTREONAM LYSINE
     Indication: Cystic fibrosis
     Dosage: 75 MG, TID 28 DAYS ON THEN 28 DAYS OFF
     Route: 055
     Dates: start: 20210311
  2. APRI [Concomitant]
     Active Substance: DESOGESTREL\ETHINYL ESTRADIOL
  3. ESCITALOPRAM [Concomitant]
     Active Substance: ESCITALOPRAM OXALATE
  4. ESOMEPRAZOLE MAGNESIUM [Concomitant]
     Active Substance: ESOMEPRAZOLE MAGNESIUM
  5. KETOCONAZOLE [Concomitant]
     Active Substance: KETOCONAZOLE

REACTIONS (2)
  - Cystic fibrosis respiratory infection suppression [Unknown]
  - Pain in extremity [Unknown]

NARRATIVE: CASE EVENT DATE: 20231209
